FAERS Safety Report 16324196 (Version 2)
Quarter: 2019Q2

REPORT INFORMATION
  Report Type: Spontaneous
  Country: GB (occurrence: GB)
  Receive Date: 20190517
  Receipt Date: 20190606
  Transmission Date: 20190711
  Serious: Yes (Death, Life-Threatening, Hospitalization)
  Sender: FDA-Public Use
  Company Number: GB-ACCORD-127899

PATIENT
  Age: 73 Year
  Sex: Male
  Weight: 73.1 kg

DRUGS (7)
  1. RITUXIMAB. [Suspect]
     Active Substance: RITUXIMAB
     Indication: B-CELL LYMPHOMA
     Dosage: 700 MG, UNKNOWN FREQ.
     Route: 042
     Dates: start: 20190228
  2. PARACETAMOL [Concomitant]
     Active Substance: ACETAMINOPHEN
  3. ALLOPURINOL. [Concomitant]
     Active Substance: ALLOPURINOL
  4. BENDAMUSTINE/BENDAMUSTINE HYDROCHLORIDE [Suspect]
     Active Substance: BENDAMUSTINE HYDROCHLORIDE
     Indication: B-CELL LYMPHOMA
     Dosage: POWDER (EXCEPT DUSTING POWDER)
     Route: 042
     Dates: start: 20190228
  5. ONDANSETRON [Concomitant]
     Active Substance: ONDANSETRON
  6. CARBOCISTEINE/CARBOCISTEINE LYSINE/CARBOCISTEINE SODIUM [Concomitant]
  7. CHLORPHENAMINE/CHLORPHENAMINE MALEATE/CHLORPHENAMINE RESINATE/CHLORPHENAMINE TANNATE [Concomitant]

REACTIONS (7)
  - Hypotension [Fatal]
  - Tachycardia [Fatal]
  - Confusional state [Fatal]
  - Tachypnoea [Fatal]
  - Dyspnoea [Fatal]
  - Pneumonia [Fatal]
  - Sepsis [Fatal]

NARRATIVE: CASE EVENT DATE: 20190307
